FAERS Safety Report 7978772-9 (Version None)
Quarter: 2011Q4

REPORT INFORMATION
  Report Type: 
  Country: None (occurrence: None)
  Receive Date: 20111129
  Receipt Date: 20110811
  Transmission Date: 20120403
  Serious: Yes (Hospitalization)
  Sender: FDA-Public Use
  Company Number: PHHY2011US49963

PATIENT
  Age: 67 Year
  Sex: Male

DRUGS (1)
  1. AFINITOR [Suspect]
     Indication: MALIGNANT URINARY TRACT NEOPLASM
     Dosage: 10 MG, ORAL
     Route: 048
     Dates: start: 20110422, end: 20110725

REACTIONS (7)
  - DRUG INEFFECTIVE [None]
  - LUNG DISORDER [None]
  - CONSTIPATION [None]
  - OEDEMA PERIPHERAL [None]
  - PAIN [None]
  - STOMATITIS [None]
  - RASH [None]
